FAERS Safety Report 25493096 (Version 1)
Quarter: 2025Q2

REPORT INFORMATION
  Report Type: Other
  Country: US (occurrence: US)
  Receive Date: 20250630
  Receipt Date: 20250630
  Transmission Date: 20250716
  Serious: No
  Sender: TRAVERE THERAPEUTICS
  Company Number: US-TRAVERE-2025TVT00797

PATIENT
  Age: 24 Year
  Sex: Female

DRUGS (1)
  1. FILSPARI [Suspect]
     Active Substance: SPARSENTAN
     Indication: IgA nephropathy
     Dosage: 200 MG, TAKING 1/2 TABLET DAILY
     Route: 048
     Dates: start: 20250509

REACTIONS (2)
  - Off label use [Unknown]
  - Wrong technique in product usage process [Unknown]
